FAERS Safety Report 10497133 (Version 1)
Quarter: 2014Q4

REPORT INFORMATION
  Report Type: Spontaneous
  Country: US (occurrence: US)
  Receive Date: 20141006
  Receipt Date: 20141006
  Transmission Date: 20150528
  Serious: No
  Sender: FDA-Public Use
  Company Number: US-SHIRE-US201406485

PATIENT
  Age: 70 Year
  Sex: Female
  Weight: 54.42 kg

DRUGS (10)
  1. BABY ASPIRIN [Concomitant]
     Active Substance: ASPIRIN
     Indication: ANTICOAGULANT THERAPY
  2. SIMVASTATIN. [Concomitant]
     Active Substance: SIMVASTATIN
     Indication: HEART VALVE STENOSIS
  3. IPRATROPIUM BROMIDE. [Concomitant]
     Active Substance: IPRATROPIUM BROMIDE
     Indication: SINUS CONGESTION
     Dosage: 1 DF (1 SPRAY IN EACH NOSTRIL), AS REQ^D
     Route: 045
     Dates: start: 2011
  4. BABY ASPIRIN [Concomitant]
     Active Substance: ASPIRIN
     Indication: HEART VALVE STENOSIS
     Dosage: 81 MG, OTHER (EVERY OTHER DAY)
     Route: 048
     Dates: start: 2004
  5. IPRATROPIUM BROMIDE. [Concomitant]
     Active Substance: IPRATROPIUM BROMIDE
     Indication: SINUS DISORDER
  6. SEA SALT [Concomitant]
     Indication: HYPONATRAEMIC SYNDROME
     Dosage: 1 TSP, 1X/DAY:QD
     Route: 048
  7. LIALDA [Suspect]
     Active Substance: MESALAMINE
     Indication: GASTROINTESTINAL DISORDER
  8. SIMVASTATIN. [Concomitant]
     Active Substance: SIMVASTATIN
     Indication: BLOOD CHOLESTEROL INCREASED
     Dosage: 20 MG, 1X/DAY:QD
     Route: 048
     Dates: start: 2004
  9. VITAMINS NOS [Concomitant]
     Active Substance: VITAMINS
     Indication: VITAMIN SUPPLEMENTATION
     Dosage: 10 MG, 1X/DAY:QD
     Route: 048
  10. LIALDA [Suspect]
     Active Substance: MESALAMINE
     Indication: DIARRHOEA
     Dosage: 2.4 G (TWO 1.2 G), 1X/DAY:QD (IN THE MORNING)
     Route: 048
     Dates: start: 20140926

REACTIONS (2)
  - Headache [Not Recovered/Not Resolved]
  - Product use issue [Not Recovered/Not Resolved]

NARRATIVE: CASE EVENT DATE: 20140926
